FAERS Safety Report 22596806 (Version 2)
Quarter: 2023Q2

REPORT INFORMATION
  Report Type: Report from Study
  Country: CZ (occurrence: CZ)
  Receive Date: 20230613
  Receipt Date: 20230621
  Transmission Date: 20230722
  Serious: Yes (Other)
  Sender: FDA-Public Use
  Company Number: CZ-TEVA-2022-CZ-2817419

PATIENT
  Age: 31 Year
  Sex: Female
  Weight: 58 kg

DRUGS (2)
  1. SOLU-MEDROL [Suspect]
     Active Substance: METHYLPREDNISOLONE SODIUM SUCCINATE
     Indication: Multiple sclerosis relapse
     Dosage: 4 INFUSIONS
     Route: 065
     Dates: start: 202209, end: 202209
  2. COPAXONE [Suspect]
     Active Substance: GLATIRAMER ACETATE
     Indication: Multiple sclerosis
     Dosage: 40 MG, WEEKLY
     Route: 058
     Dates: start: 20221007

REACTIONS (5)
  - Infection [Recovered/Resolved]
  - Haemorrhage in pregnancy [Recovered/Resolved]
  - Abdominal wall disorder [Unknown]
  - Maternal exposure during pregnancy [Unknown]
  - Asthenia [Recovered/Resolved]

NARRATIVE: CASE EVENT DATE: 20220901
